FAERS Safety Report 14415449 (Version 1)
Quarter: 2018Q1

REPORT INFORMATION
  Report Type: Report from Study
  Country: CA (occurrence: CA)
  Receive Date: 20180121
  Receipt Date: 20180121
  Transmission Date: 20180509
  Serious: Yes (Death)
  Sender: FDA-Public Use
  Company Number: PHHY2017CA038973

PATIENT
  Age: 84 Year
  Sex: Female

DRUGS (3)
  1. TAFINLAR [Suspect]
     Active Substance: DABRAFENIB MESYLATE
     Indication: METASTATIC MALIGNANT MELANOMA
     Dosage: 2 DF, BID
     Route: 048
     Dates: start: 20170222
  2. MEKINIST [Suspect]
     Active Substance: TRAMETINIB DIMETHYL SULFOXIDE
     Indication: METASTATIC MALIGNANT MELANOMA
     Dosage: 1 DF, QD
     Route: 048
     Dates: start: 20170222, end: 20170721
  3. MEKINIST [Suspect]
     Active Substance: TRAMETINIB DIMETHYL SULFOXIDE
     Dosage: 1 DF, QD
     Route: 048
     Dates: start: 20170804

REACTIONS (7)
  - Feeling abnormal [Unknown]
  - Chills [Unknown]
  - Vision blurred [Not Recovered/Not Resolved]
  - Death [Fatal]
  - Abdominal discomfort [Unknown]
  - Nasopharyngitis [Unknown]
  - Drug resistance [Unknown]

NARRATIVE: CASE EVENT DATE: 20170413
